FAERS Safety Report 4335971-5 (Version None)
Quarter: 2004Q2

REPORT INFORMATION
  Report Type: 
  Country: None (occurrence: None)
  Receive Date: 20040406
  Receipt Date: 20040324
  Transmission Date: 20050107
  Serious: Yes (Hospitalization)
  Sender: FDA-Public Use
  Company Number: 04P-056-0253639-00

PATIENT
  Age: 40 Year
  Sex: Male

DRUGS (4)
  1. DEPAKOTE [Suspect]
     Indication: SUICIDE ATTEMPT
     Dosage: PER ORAL
     Route: 048
     Dates: start: 20031021, end: 20031021
  2. CLONAZEPAM [Suspect]
     Indication: SUICIDE ATTEMPT
     Dosage: PER ORAL
     Route: 048
     Dates: start: 20031021, end: 20031021
  3. OXAZEPAM [Suspect]
     Indication: SUICIDE ATTEMPT
     Dosage: PER ORAL
     Route: 048
     Dates: start: 20031021, end: 20031021
  4. OLANZAPINE [Concomitant]

REACTIONS (4)
  - INTENTIONAL OVERDOSE [None]
  - PHLEBOTOMY [None]
  - SUICIDE ATTEMPT [None]
  - THROMBOCYTOPENIA [None]
